FAERS Safety Report 13691077 (Version 2)
Quarter: 2017Q3

REPORT INFORMATION
  Report Type: Spontaneous
  Country: US (occurrence: US)
  Receive Date: 20170626
  Receipt Date: 20170717
  Transmission Date: 20171127
  Serious: Yes (Hospitalization, Other)
  Sender: FDA-Public Use
  Company Number: US-PFIZER INC-2017271963

PATIENT
  Sex: Female

DRUGS (1)
  1. XELJANZ [Suspect]
     Active Substance: TOFACITINIB CITRATE
     Dosage: 5 MG, 2X/DAY

REACTIONS (18)
  - Post procedural complication [Unknown]
  - Laryngeal injury [Unknown]
  - Red blood cell sedimentation rate increased [Unknown]
  - Joint range of motion decreased [Unknown]
  - Joint stiffness [Unknown]
  - C-reactive protein increased [Unknown]
  - Cough [Unknown]
  - Bone cyst [Unknown]
  - Arthralgia [Unknown]
  - Arthropathy [Unknown]
  - Musculoskeletal chest pain [Unknown]
  - Gait disturbance [Unknown]
  - Tenderness [Unknown]
  - Condition aggravated [Unknown]
  - Neoplasm malignant [Unknown]
  - Muscular weakness [Unknown]
  - Jugular vein thrombosis [Unknown]
  - Neuropathy peripheral [Unknown]
